FAERS Safety Report 8917387 (Version 1)
Quarter: 2012Q4

REPORT INFORMATION
  Report Type: 
  Country: US (occurrence: US)
  Receive Date: 20121120
  Receipt Date: 20121120
  Transmission Date: 20130627
  Serious: No
  Sender: FDA-Public Use
  Company Number: US-PFIZER INC-2012288445

PATIENT
  Sex: Male

DRUGS (1)
  1. LYRICA [Suspect]
     Indication: BURNING TONGUE
     Dosage: UNK
     Dates: start: 201211

REACTIONS (2)
  - Off label use [Unknown]
  - Poor quality sleep [Unknown]
